FAERS Safety Report 13744327 (Version 1)
Quarter: 2017Q3

REPORT INFORMATION
  Report Type: Spontaneous
  Country: TR (occurrence: TR)
  Receive Date: 20170712
  Receipt Date: 20170712
  Transmission Date: 20171127
  Serious: Yes (Hospitalization)
  Sender: FDA-Public Use
  Company Number: PHHY2017TR098623

PATIENT
  Age: 52 Year
  Sex: Female

DRUGS (5)
  1. QUETIAPINE. [Suspect]
     Active Substance: QUETIAPINE
     Dosage: 600 MG, QD
     Route: 065
  2. FLUOXETINE [Suspect]
     Active Substance: FLUOXETINE HYDROCHLORIDE
     Indication: DEPRESSION
     Dosage: 20 MG, QD
     Route: 065
  3. QUETIAPINE. [Suspect]
     Active Substance: QUETIAPINE
     Indication: DEPRESSION
     Route: 065
  4. VALPROIC ACID. [Suspect]
     Active Substance: VALPROIC ACID
     Dosage: 1500 UNK, UNK
     Route: 065
  5. VALPROIC ACID. [Suspect]
     Active Substance: VALPROIC ACID
     Indication: DEPRESSION
     Dosage: 1000 MG, QD
     Route: 065

REACTIONS (1)
  - Hypomania [Unknown]
